FAERS Safety Report 6844478-2 (Version None)
Quarter: 2010Q3

REPORT INFORMATION
  Report Type: 
  Country: None (occurrence: None)
  Receive Date: 20100713
  Receipt Date: 20100210
  Transmission Date: 20110219
  Serious: Yes (Hospitalization)
  Sender: FDA-Public Use
  Company Number: 1-17240661

PATIENT
  Age: 67 Year
  Sex: Male
  Weight: 88.4514 kg

DRUGS (2)
  1. QUININE SULFATE [Suspect]
     Indication: MUSCLE SPASMS
     Dosage: ORAL
     Route: 048
     Dates: start: 20041224
  2. DAILY VITAMINS [Concomitant]

REACTIONS (8)
  - AUTOIMMUNE THROMBOCYTOPENIA [None]
  - B-CELL LYMPHOMA [None]
  - BLOOD BLISTER [None]
  - HYPERHIDROSIS [None]
  - NEOPLASM [None]
  - OSTEOARTHRITIS [None]
  - PYREXIA [None]
  - TONGUE BLISTERING [None]
